FAERS Safety Report 4779915-0 (Version None)
Quarter: 2005Q3

REPORT INFORMATION
  Report Type: 
  Country: None (occurrence: None)
  Receive Date: 20050914
  Receipt Date: 20050426
  Transmission Date: 20060218
  Serious: Yes (Hospitalization)
  Sender: FDA-Public Use
  Company Number: 163-20785-05040519

PATIENT
  Age: 47 Year
  Sex: Female

DRUGS (11)
  1. THALOMID [Suspect]
     Indication: MULTIPLE MYELOMA
     Dosage: 100 MG, QHS, ORAL
     Route: 048
     Dates: start: 20041112
  2. DEXAMETHASONE [Suspect]
     Indication: MULTIPLE MYELOMA
     Dates: start: 20041112
  3. BIAXIN [Suspect]
     Indication: MULTIPLE MYELOMA
     Dates: start: 20041112
  4. PROTONIX [Concomitant]
  5. ACYCLOVIR [Concomitant]
  6. PAMIDRONATE DISODIUM [Concomitant]
  7. VITAMIN B6 [Concomitant]
  8. ASPIRIN [Concomitant]
  9. COUMADIN [Concomitant]
  10. HYDROCHLOROTHIAZIDE [Concomitant]
  11. NORVASC (AMLODIPINE BESILATE) (UNKNOWN) [Concomitant]

REACTIONS (8)
  - CONJUNCTIVITIS [None]
  - DIABETES MELLITUS [None]
  - EAR INFECTION [None]
  - FATIGUE [None]
  - HYPERTENSION [None]
  - HYPOKALAEMIA [None]
  - SINUSITIS [None]
  - UPPER RESPIRATORY TRACT INFECTION [None]
